FAERS Safety Report 8961196 (Version 1)
Quarter: 2012Q4

REPORT INFORMATION
  Report Type: 
  Country: US (occurrence: US)
  Receive Date: 20121213
  Receipt Date: 20121213
  Transmission Date: 20130627
  Serious: No
  Sender: FDA-Public Use
  Company Number: US-ALLERGAN-1213539US

PATIENT
  Sex: Female

DRUGS (6)
  1. LUMIGAN� 0.01% [Suspect]
     Indication: GLAUCOMA
     Dosage: 2 Gtt, qhs
     Route: 047
     Dates: start: 20120927
  2. KLONOPIN [Concomitant]
     Indication: DIFFICULTY SLEEPING
     Dosage: UNK
     Route: 048
  3. ESTROGEN [Concomitant]
     Indication: HRT
     Dosage: UNK
  4. RISPERIDONE [Concomitant]
     Indication: AUDITORY HALLUCINATIONS
     Dosage: UNK
     Route: 048
  5. BENZTROPINE [Concomitant]
     Indication: AUDITORY HALLUCINATIONS
     Dosage: UNK UNK, qpm
     Route: 048
  6. POLYETHYLENE GLYCOL [Concomitant]
     Indication: CONSTIPATION
     Dosage: UNK UNK, bid
     Route: 048

REACTIONS (1)
  - Ocular hyperaemia [Recovering/Resolving]
